FAERS Safety Report 18808834 (Version 1)
Quarter: 2021Q1

REPORT INFORMATION
  Report Type: Spontaneous
  Country: NL (occurrence: NL)
  Receive Date: 20210129
  Receipt Date: 20210129
  Transmission Date: 20210419
  Serious: Yes (Disabling)
  Sender: FDA-Public Use
  Company Number: NL-SUN PHARMACEUTICAL INDUSTRIES LTD-2021RR-278388

PATIENT
  Age: 61 Year
  Sex: Female
  Weight: 80 kg

DRUGS (9)
  1. BISOPROLOL FUMARAAT / BRAND NAME NOT SPECIFIEDBISOPROLOL FUMARAAT [Concomitant]
     Indication: PRODUCT USED FOR UNKNOWN INDICATION
     Dosage: IV 5MG/ BISO 10MG PERIN 2MG  ACETYL 80MG EPL 25 MG  OMPR 20MG ()
     Route: 065
  2. IVABRADINE TABLET 5MG / PROCORALAN TABLET FILMOMHULD 5MGPROCORALAN ... [Concomitant]
     Indication: PRODUCT USED FOR UNKNOWN INDICATION
     Dosage: IV 5MG/ BISO 10MG PERIN 2MG  ACETYL 80MG EPL 25 MG  OMPR 20MG ()
     Route: 065
  3. PERINDOPRIL TABLET 2MG (ERBUMINE) / BRAND NAME NOT SPECIFIEDPERINDO... [Concomitant]
     Indication: PRODUCT USED FOR UNKNOWN INDICATION
     Dosage: IV 5MG/ BISO 10MG PERIN 2MG  ACETYL 80MG EPL 25 MG  OMPR 20MG ()
     Route: 065
  4. TIOTROPIUM INHALATIECAPSULE 18UG / SPIRIVA INHALPDR 18MCGSPIRIVA IN... [Concomitant]
     Indication: PRODUCT USED FOR UNKNOWN INDICATION
     Dosage: UNK
     Route: 065
  5. OMEPRAZOL / BRAND NAME NOT SPECIFIEDOMEPRAZOL [Concomitant]
     Indication: PRODUCT USED FOR UNKNOWN INDICATION
     Dosage: IV 5MG/ BISO 10MG PERIN 2MG  ACETYL 80MG EPL 25 MG  OMPR 20MG ()
     Route: 065
  6. EPLERENON TABLET 25MG / BRAND NAME NOT SPECIFIEDEPLERENON TABLET 25MG [Concomitant]
     Indication: PRODUCT USED FOR UNKNOWN INDICATION
     Dosage: IV 5MG/ BISO 10MG PERIN 2MG  ACETYL 80MG EPL 25 MG  OMPR 20MG ()
     Route: 065
  7. ACETYLSALICYLZUUR / BRAND NAME NOT SPECIFIEDACETYLSALICYLZUUR [Concomitant]
     Indication: PRODUCT USED FOR UNKNOWN INDICATION
     Dosage: IV 5MG/ BISO 10MG PERIN 2MG  ACETYL 80MG EPL 25 MG  OMPR 20MG ()
     Route: 065
  8. EZETIMIBE/SIMVASTATIN [Suspect]
     Active Substance: EZETIMIBE\SIMVASTATIN
     Indication: CARDIAC DISORDER
     Dosage: 1 DOSAGE FORM, DAILY
     Route: 065
     Dates: start: 2010, end: 20200520
  9. BECLOMETASON/FORMOTEROL INHALATIEPOEDER 100/6UG/DO / FOSTER NEXTHAL... [Concomitant]
     Indication: PRODUCT USED FOR UNKNOWN INDICATION
     Dosage: UNK
     Route: 065

REACTIONS (8)
  - Abdominal pain [Not Recovered/Not Resolved]
  - Crying [Not Recovered/Not Resolved]
  - Back pain [Not Recovered/Not Resolved]
  - Therapeutic response unexpected [Unknown]
  - Depressed mood [Not Recovered/Not Resolved]
  - Neck pain [Not Recovered/Not Resolved]
  - Asthenia [Not Recovered/Not Resolved]
  - Disturbance in attention [Not Recovered/Not Resolved]

NARRATIVE: CASE EVENT DATE: 20200520
